FAERS Safety Report 6906776-3 (Version None)
Quarter: 2010Q3

REPORT INFORMATION
  Report Type: 
  Country: None (occurrence: None)
  Receive Date: 20100802
  Receipt Date: 20100714
  Transmission Date: 20110219
  Serious: Yes (Other)
  Sender: FDA-Public Use
  Company Number: JPI-P-011424

PATIENT
  Age: 39 Year
  Weight: 83.9154 kg

DRUGS (3)
  1. XYREM [Suspect]
     Indication: NARCOLEPSY
     Dosage: ,ORAL, 6 GM (3 GM,2 IN 1 D), ORAL
     Route: 048
     Dates: start: 20080220
  2. XYREM [Suspect]
     Indication: SOMNOLENCE
     Dosage: ,ORAL, 6 GM (3 GM,2 IN 1 D), ORAL
     Route: 048
     Dates: start: 20080220
  3. LAMOTRIGINE [Concomitant]

REACTIONS (2)
  - AMNESIA [None]
  - EPILEPSY [None]
